FAERS Safety Report 7334974-6 (Version None)
Quarter: 2011Q1

REPORT INFORMATION
  Report Type: 
  Country: None (occurrence: None)
  Receive Date: 20110307
  Receipt Date: 20110228
  Transmission Date: 20110831
  Serious: Yes (Other)
  Sender: FDA-Public Use
  Company Number: IT-ROCHE-762847

PATIENT

DRUGS (3)
  1. CAPECITABINE [Suspect]
     Indication: GASTRIC CANCER
     Dosage: 700-1000 MG/M2, DAYS 2-15, EVERY 3 WEEKS
     Route: 048
  2. DOCETAXEL [Suspect]
     Indication: GASTRIC CANCER
     Dosage: 25-35 MG/M2 DAYS 1,8
     Route: 042
  3. OXALIPLATIN [Suspect]
     Indication: GASTRIC CANCER
     Dosage: 60-70 MG/M2 DAYS 1,8;
     Route: 042

REACTIONS (2)
  - HAEMATOTOXICITY [None]
  - TOXICITY TO VARIOUS AGENTS [None]
